FAERS Safety Report 8849911 (Version 2)
Quarter: 2014Q4

REPORT INFORMATION
  Report Type: Report from Study
  Country: AU (occurrence: AU)
  Receive Date: 20121019
  Receipt Date: 20141226
  Transmission Date: 20150529
  Serious: Yes (Hospitalization, Other)
  Sender: FDA-Public Use
  Company Number: AU-ROCHE-1144812

PATIENT
  Sex: Female

DRUGS (1)
  1. ACTEMRA [Suspect]
     Active Substance: TOCILIZUMAB
     Indication: RHEUMATOID ARTHRITIS
     Dosage: LAST DOSE OF DRUG ADMINISTERED ON 13/SEP/2012
     Route: 042
     Dates: start: 20110526

REACTIONS (3)
  - Cervical vertebral fracture [Unknown]
  - Skin graft [Unknown]
  - Fall [Unknown]
